FAERS Safety Report 18737676 (Version 1)
Quarter: 2021Q1

REPORT INFORMATION
  Report Type: Spontaneous
  Country: IR (occurrence: IR)
  Receive Date: 20210113
  Receipt Date: 20210113
  Transmission Date: 20210419
  Serious: Yes (Other)
  Sender: FDA-Public Use
  Company Number: IR-BEH-2021127167

PATIENT
  Age: 6 Year
  Sex: Female

DRUGS (2)
  1. HAEMATE [Suspect]
     Active Substance: ANTIHEMOPHILIC FACTOR HUMAN
     Indication: VON WILLEBRAND^S DISEASE
     Route: 065
  2. HAEMATE [Suspect]
     Active Substance: ANTIHEMOPHILIC FACTOR HUMAN
     Indication: VON WILLEBRAND^S DISEASE
     Route: 065

REACTIONS (3)
  - Epistaxis [Unknown]
  - Haemarthrosis [Unknown]
  - Inhibiting antibodies positive [Unknown]
